FAERS Safety Report 4389735-7 (Version None)
Quarter: 2004Q2

REPORT INFORMATION
  Report Type: 
  Country: None (occurrence: None)
  Receive Date: 20040629
  Receipt Date: 20030922
  Transmission Date: 20050107
  Serious: Yes (Hospitalization)
  Sender: FDA-Public Use
  Company Number: US-JNJFOC-20030603625

PATIENT
  Age: 28 Year
  Sex: Male
  Weight: 78.0187 kg

DRUGS (7)
  1. DURAGESIC [Suspect]
     Indication: PAIN
     Dosage: SEE IMAGE
     Route: 062
     Dates: start: 20030501, end: 20030601
  2. DURAGESIC [Suspect]
     Indication: PAIN
     Dosage: SEE IMAGE
     Route: 062
     Dates: start: 20030618, end: 20030624
  3. NEURONTIN [Concomitant]
  4. PAXIL [Concomitant]
  5. ZYPREXA [Concomitant]
  6. CLONAZOPAM (CLONAZEPAM) [Concomitant]
  7. AMBIEN [Concomitant]

REACTIONS (1)
  - OEDEMA PERIPHERAL [None]
